FAERS Safety Report 15624123 (Version 2)
Quarter: 2018Q4

REPORT INFORMATION
  Report Type: Spontaneous
  Country: US (occurrence: US)
  Receive Date: 20181116
  Receipt Date: 20181129
  Transmission Date: 20190205
  Serious: Yes (Hospitalization, Other)
  Sender: FDA-Public Use
  Company Number: US-APOTEX-2018AP024910

PATIENT
  Sex: Female
  Weight: 62.5 kg

DRUGS (1)
  1. IBANDRONATE SODIUM. [Suspect]
     Active Substance: IBANDRONATE SODIUM
     Indication: OSTEOPENIA
     Dosage: 150 MG, Q.M.T.
     Route: 048
     Dates: start: 20061001

REACTIONS (2)
  - Preventive surgery [Not Recovered/Not Resolved]
  - Femur fracture [Not Recovered/Not Resolved]
